FAERS Safety Report 12438718 (Version 5)
Quarter: 2016Q3

REPORT INFORMATION
  Report Type: Spontaneous
  Country: US (occurrence: US)
  Receive Date: 20160606
  Receipt Date: 20160919
  Transmission Date: 20161109
  Serious: Yes (Hospitalization, Other)
  Sender: FDA-Public Use
  Company Number: US-JNJFOC-20160529596

PATIENT
  Age: 83 Year
  Sex: Male
  Weight: 83.46 kg

DRUGS (2)
  1. XARELTO [Suspect]
     Active Substance: RIVAROXABAN
     Indication: CEREBROVASCULAR ACCIDENT PROPHYLAXIS
     Dosage: IN VARIED DOSES OF 15MG AND 20MG
     Route: 048
     Dates: start: 20121114, end: 20140818
  2. XARELTO [Suspect]
     Active Substance: RIVAROXABAN
     Indication: ATRIAL FIBRILLATION
     Dosage: IN VARIED DOSES OF 15MG AND 20MG
     Route: 048
     Dates: start: 20121114, end: 20140818

REACTIONS (4)
  - Deep vein thrombosis [Unknown]
  - Haemorrhage [Unknown]
  - Haematuria [Recovered/Resolved]
  - Thrombosis [Unknown]

NARRATIVE: CASE EVENT DATE: 20140722
